FAERS Safety Report 7028333-3 (Version None)
Quarter: 2010Q4

REPORT INFORMATION
  Report Type: 
  Country: None (occurrence: None)
  Receive Date: 20101005
  Receipt Date: 20101001
  Transmission Date: 20110411
  Serious: Yes (Death, Hospitalization)
  Sender: FDA-Public Use
  Company Number: SK-ROCHE-727814

PATIENT
  Sex: Female

DRUGS (3)
  1. BEVACIZUMAB [Suspect]
     Route: 042
     Dates: start: 20100803, end: 20100817
  2. CAMPTOSAR [Suspect]
     Route: 042
     Dates: start: 20100803, end: 20100817
  3. FLUOROURACIL [Suspect]
     Dosage: DRUG NAME REPORTED AS 5-FLUOROURECIL INJ
     Route: 042
     Dates: start: 20100803, end: 20100817

REACTIONS (2)
  - CARDIAC FAILURE [None]
  - NEUTROPENIA [None]
